FAERS Safety Report 9139272 (Version 1)
Quarter: 2013Q1

REPORT INFORMATION
  Report Type: Spontaneous
  Country: US (occurrence: None)
  Receive Date: 20130205
  Receipt Date: 20130205
  Transmission Date: 20140127
  Serious: Yes (Death, Hospitalization)
  Sender: FDA-Public Use
  Company Number: NSR_01006_2013

PATIENT
  Age: 19 Year
  Sex: Female

DRUGS (2)
  1. FLUOXETINE [Suspect]
     Indication: PRODUCT USED FOR UNKNOWN INDICATION
     Dosage: DF ORAL
     Dates: start: 2011, end: 2011
  2. ALPRAZOLAM [Suspect]
     Indication: PRODUCT USED FOR UNKNOWN INDICATION
     Dosage: 20-30 TABLETS, NOT THE PRESCRIBED AMOUNT
     Route: 048
     Dates: start: 2011, end: 2011

REACTIONS (12)
  - Respiratory arrest [None]
  - Cardiac arrest [None]
  - Completed suicide [None]
  - Poisoning [None]
  - Unresponsive to stimuli [None]
  - Abnormal behaviour [None]
  - Pulse absent [None]
  - Apnoea [None]
  - Brain oedema [None]
  - Hypoxic-ischaemic encephalopathy [None]
  - Toxicity to various agents [None]
  - Overdose [None]
